FAERS Safety Report 5062925-6 (Version None)
Quarter: 2006Q3

REPORT INFORMATION
  Report Type: 
  Country: None (occurrence: None)
  Receive Date: 20060724
  Receipt Date: 20060711
  Transmission Date: 20061208
  Serious: Yes (Other)
  Sender: FDA-Public Use
  Company Number: 2006087532

PATIENT
  Age: 25 Year
  Sex: Female
  Weight: 70 kg

DRUGS (4)
  1. LYRICA [Suspect]
     Indication: COMPLEX REGIONAL PAIN SYNDROME
     Dosage: (2 IN 1 D), ORAL
     Route: 048
     Dates: start: 20050810, end: 20050903
  2. TRAMADOL HCL [Concomitant]
  3. AMITRIPTYLINE HCL [Concomitant]
  4. RADEPUR (CHLORDIAZEPOXIDE) [Concomitant]

REACTIONS (2)
  - CAESAREAN SECTION [None]
  - DRUG EXPOSURE DURING PREGNANCY [None]
